FAERS Safety Report 5381426-9 (Version None)
Quarter: 2007Q3

REPORT INFORMATION
  Report Type: 
  Country: None (occurrence: None)
  Receive Date: 20070709
  Receipt Date: 20070629
  Transmission Date: 20080115
  Serious: Yes (Death)
  Sender: FDA-Public Use
  Company Number: TR-NOVOPROD-265086

PATIENT
  Sex: Male
  Weight: 3.07 kg

DRUGS (1)
  1. NOVOLOG MIX 70/30 [Suspect]
     Route: 064
     Dates: start: 20070221, end: 20070501

REACTIONS (1)
  - CONGENITAL ANOMALY [None]
